FAERS Safety Report 17332986 (Version 3)
Quarter: 2025Q3

REPORT INFORMATION
  Report Type: Spontaneous
  Country: EU (occurrence: EU)
  Receive Date: 20200128
  Receipt Date: 20250724
  Transmission Date: 20251020
  Serious: Yes (Life-Threatening, Hospitalization, Other)
  Sender: MYLAN
  Company Number: EU-KRKA-PL2019K18139LIT

PATIENT
  Age: 60 Year
  Sex: Female

DRUGS (76)
  1. METFORMIN [Suspect]
     Active Substance: METFORMIN HYDROCHLORIDE
     Indication: Diabetes mellitus
     Dosage: 850 MG, 1X PER DAY
  2. METFORMIN [Suspect]
     Active Substance: METFORMIN HYDROCHLORIDE
     Dosage: 850 MG, 1X PER DAY
     Route: 065
  3. METFORMIN [Suspect]
     Active Substance: METFORMIN HYDROCHLORIDE
     Dosage: 850 MG, 1X PER DAY
     Route: 065
  4. METFORMIN [Suspect]
     Active Substance: METFORMIN HYDROCHLORIDE
     Dosage: 850 MG, 1X PER DAY
  5. SIMVASTATIN [Suspect]
     Active Substance: SIMVASTATIN
     Indication: Hypercholesterolaemia
     Dosage: 20 MG, 1X PER DAY
  6. SIMVASTATIN [Suspect]
     Active Substance: SIMVASTATIN
     Dosage: 20 MG, 1X PER DAY
     Route: 065
  7. SIMVASTATIN [Suspect]
     Active Substance: SIMVASTATIN
     Dosage: 20 MG, 1X PER DAY
     Route: 065
  8. SIMVASTATIN [Suspect]
     Active Substance: SIMVASTATIN
     Dosage: 20 MG, 1X PER DAY
  9. AMOXICILLIN\CLAVULANIC ACID [Suspect]
     Active Substance: AMOXICILLIN\CLAVULANIC ACID
     Indication: Product used for unknown indication
     Dosage: 2000 MG, 1X PER DAY
  10. AMOXICILLIN\CLAVULANIC ACID [Suspect]
     Active Substance: AMOXICILLIN\CLAVULANIC ACID
     Dosage: 2000 MG, 1X PER DAY
     Route: 065
  11. AMOXICILLIN\CLAVULANIC ACID [Suspect]
     Active Substance: AMOXICILLIN\CLAVULANIC ACID
     Dosage: 2000 MG, 1X PER DAY
     Route: 065
  12. AMOXICILLIN\CLAVULANIC ACID [Suspect]
     Active Substance: AMOXICILLIN\CLAVULANIC ACID
     Dosage: 2000 MG, 1X PER DAY
  13. FLUDARABINE [Suspect]
     Active Substance: FLUDARABINE PHOSPHATE
     Indication: Disease progression
     Route: 065
  14. FLUDARABINE [Suspect]
     Active Substance: FLUDARABINE PHOSPHATE
     Indication: Chronic lymphocytic leukaemia
  15. FLUDARABINE [Suspect]
     Active Substance: FLUDARABINE PHOSPHATE
  16. FLUDARABINE [Suspect]
     Active Substance: FLUDARABINE PHOSPHATE
     Route: 065
  17. FLUDARABINE [Suspect]
     Active Substance: FLUDARABINE PHOSPHATE
  18. FLUDARABINE [Suspect]
     Active Substance: FLUDARABINE PHOSPHATE
  19. FLUDARABINE [Suspect]
     Active Substance: FLUDARABINE PHOSPHATE
     Route: 065
  20. FLUDARABINE [Suspect]
     Active Substance: FLUDARABINE PHOSPHATE
     Route: 065
  21. FLUDARABINE [Suspect]
     Active Substance: FLUDARABINE PHOSPHATE
     Route: 065
  22. FLUDARABINE [Suspect]
     Active Substance: FLUDARABINE PHOSPHATE
  23. FLUDARABINE [Suspect]
     Active Substance: FLUDARABINE PHOSPHATE
  24. FLUDARABINE [Suspect]
     Active Substance: FLUDARABINE PHOSPHATE
     Route: 065
  25. FILGRASTIM [Suspect]
     Active Substance: FILGRASTIM
     Indication: Product used for unknown indication
  26. FILGRASTIM [Suspect]
     Active Substance: FILGRASTIM
     Route: 058
  27. FILGRASTIM [Suspect]
     Active Substance: FILGRASTIM
     Route: 058
  28. FILGRASTIM [Suspect]
     Active Substance: FILGRASTIM
  29. METHYLPREDNISOLONE [Suspect]
     Active Substance: METHYLPREDNISOLONE
     Indication: Product used for unknown indication
  30. METHYLPREDNISOLONE [Suspect]
     Active Substance: METHYLPREDNISOLONE
     Route: 065
  31. METHYLPREDNISOLONE [Suspect]
     Active Substance: METHYLPREDNISOLONE
     Route: 065
  32. METHYLPREDNISOLONE [Suspect]
     Active Substance: METHYLPREDNISOLONE
  33. CIPROFLOXACIN [Suspect]
     Active Substance: CIPROFLOXACIN
     Indication: Product used for unknown indication
     Dosage: 1000 MG, 1X PER DAY
  34. CIPROFLOXACIN [Suspect]
     Active Substance: CIPROFLOXACIN
     Dosage: 1000 MG, 1X PER DAY
     Route: 065
  35. CIPROFLOXACIN [Suspect]
     Active Substance: CIPROFLOXACIN
     Dosage: 1000 MG, 1X PER DAY
     Route: 065
  36. CIPROFLOXACIN [Suspect]
     Active Substance: CIPROFLOXACIN
     Dosage: 1000 MG, 1X PER DAY
  37. DEXAMETHASONE [Suspect]
     Active Substance: DEXAMETHASONE
     Indication: Chronic lymphocytic leukaemia
  38. DEXAMETHASONE [Suspect]
     Active Substance: DEXAMETHASONE
     Route: 065
  39. DEXAMETHASONE [Suspect]
     Active Substance: DEXAMETHASONE
     Route: 065
  40. DEXAMETHASONE [Suspect]
     Active Substance: DEXAMETHASONE
  41. RAMIPRIL [Suspect]
     Active Substance: RAMIPRIL
     Indication: Hypertension
     Dosage: 5 MG, 1X PER DAY
  42. RAMIPRIL [Suspect]
     Active Substance: RAMIPRIL
     Dosage: 5 MG, 1X PER DAY
     Route: 065
  43. RAMIPRIL [Suspect]
     Active Substance: RAMIPRIL
     Dosage: 5 MG, 1X PER DAY
     Route: 065
  44. RAMIPRIL [Suspect]
     Active Substance: RAMIPRIL
     Dosage: 5 MG, 1X PER DAY
  45. CYCLOPHOSPHAMIDE [Suspect]
     Active Substance: CYCLOPHOSPHAMIDE
     Indication: Product used for unknown indication
  46. CYCLOPHOSPHAMIDE [Suspect]
     Active Substance: CYCLOPHOSPHAMIDE
     Route: 065
  47. CYCLOPHOSPHAMIDE [Suspect]
     Active Substance: CYCLOPHOSPHAMIDE
     Route: 065
  48. CYCLOPHOSPHAMIDE [Suspect]
     Active Substance: CYCLOPHOSPHAMIDE
  49. RITUXIMAB [Suspect]
     Active Substance: RITUXIMAB
     Indication: Disease progression
     Route: 065
  50. RITUXIMAB [Suspect]
     Active Substance: RITUXIMAB
  51. RITUXIMAB [Suspect]
     Active Substance: RITUXIMAB
  52. RITUXIMAB [Suspect]
     Active Substance: RITUXIMAB
     Route: 065
  53. RITUXIMAB [Suspect]
     Active Substance: RITUXIMAB
     Route: 065
  54. RITUXIMAB [Suspect]
     Active Substance: RITUXIMAB
  55. RITUXIMAB [Suspect]
     Active Substance: RITUXIMAB
  56. RITUXIMAB [Suspect]
     Active Substance: RITUXIMAB
     Route: 065
  57. RITUXIMAB [Suspect]
     Active Substance: RITUXIMAB
     Route: 065
  58. RITUXIMAB [Suspect]
     Active Substance: RITUXIMAB
     Route: 065
  59. RITUXIMAB [Suspect]
     Active Substance: RITUXIMAB
  60. RITUXIMAB [Suspect]
     Active Substance: RITUXIMAB
  61. FLUCONAZOLE [Suspect]
     Active Substance: FLUCONAZOLE
     Indication: Product used for unknown indication
     Dosage: 100 MILLIGRAM, QD, 100 MG, 1X PER DAY
  62. FLUCONAZOLE [Suspect]
     Active Substance: FLUCONAZOLE
     Dosage: 100 MILLIGRAM, QD, 100 MG, 1X PER DAY
     Route: 065
  63. FLUCONAZOLE [Suspect]
     Active Substance: FLUCONAZOLE
     Dosage: 100 MILLIGRAM, QD, 100 MG, 1X PER DAY
     Route: 065
  64. FLUCONAZOLE [Suspect]
     Active Substance: FLUCONAZOLE
     Dosage: 100 MILLIGRAM, QD, 100 MG, 1X PER DAY
  65. CYCLOPHOSPHAMIDE [Suspect]
     Active Substance: CYCLOPHOSPHAMIDE
     Indication: Disease progression
     Route: 065
  66. CYCLOPHOSPHAMIDE [Suspect]
     Active Substance: CYCLOPHOSPHAMIDE
     Indication: Chronic lymphocytic leukaemia
  67. CYCLOPHOSPHAMIDE [Suspect]
     Active Substance: CYCLOPHOSPHAMIDE
  68. CYCLOPHOSPHAMIDE [Suspect]
     Active Substance: CYCLOPHOSPHAMIDE
     Route: 065
  69. CYCLOPHOSPHAMIDE [Suspect]
     Active Substance: CYCLOPHOSPHAMIDE
     Route: 065
  70. CYCLOPHOSPHAMIDE [Suspect]
     Active Substance: CYCLOPHOSPHAMIDE
  71. CYCLOPHOSPHAMIDE [Suspect]
     Active Substance: CYCLOPHOSPHAMIDE
  72. CYCLOPHOSPHAMIDE [Suspect]
     Active Substance: CYCLOPHOSPHAMIDE
     Route: 065
  73. CYCLOPHOSPHAMIDE [Suspect]
     Active Substance: CYCLOPHOSPHAMIDE
     Route: 065
  74. CYCLOPHOSPHAMIDE [Suspect]
     Active Substance: CYCLOPHOSPHAMIDE
     Route: 065
  75. CYCLOPHOSPHAMIDE [Suspect]
     Active Substance: CYCLOPHOSPHAMIDE
  76. CYCLOPHOSPHAMIDE [Suspect]
     Active Substance: CYCLOPHOSPHAMIDE

REACTIONS (3)
  - Pulmonary embolism [Unknown]
  - Chronic lymphocytic leukaemia recurrent [Unknown]
  - Blood disorder [Unknown]
